FAERS Safety Report 4585359-7 (Version None)
Quarter: 2005Q1

REPORT INFORMATION
  Report Type: 
  Country: None (occurrence: None)
  Receive Date: 20050217
  Receipt Date: 20050209
  Transmission Date: 20050727
  Serious: Yes (Other)
  Sender: FDA-Public Use
  Company Number: 200511229GDDC

PATIENT
  Age: 82 Year
  Sex: Female
  Weight: 63 kg

DRUGS (12)
  1. GAVISCON [Suspect]
     Indication: ABDOMINAL PAIN UPPER
     Dosage: DOSE: UNKNOWN DOSAGE
     Route: 048
     Dates: start: 19850101
  2. POTASSIUM CHLORIDE [Concomitant]
     Dosage: DOSE: UNK
  3. RABEPRAZOLE SODIUM [Concomitant]
     Dosage: DOSE: UNKNOWN DOSAGE
  4. AMLODIPINE [Concomitant]
     Dosage: DOSE: UNKNOWN DOSAGE
  5. SIMVASTATIN [Concomitant]
     Dosage: DOSE: UNKNOWN DOSAGE
  6. GEMFIBROZIL [Concomitant]
     Dosage: DOSE: UNKNOWN DOSAGE
  7. SOTALOL HYDROCHLORIDE [Concomitant]
     Dosage: DOSE: UNK
  8. THYROXINE SODIUM [Concomitant]
     Dosage: DOSE: UNKNOWN DOSAGE
  9. FRUSEMIDE [Concomitant]
     Dosage: DOSE: UNKNOWN DOSAGE
  10. LOSARTAN POTASSIUM [Concomitant]
     Dosage: DOSE: UNKNOWN DOSAGE
  11. FOLIC ACID [Concomitant]
     Dosage: DOSE: UNKNOWN DOSAGE
  12. CYANOCOBALAMIN [Concomitant]
     Dosage: DOSE: UNKNOWN DOSAGE

REACTIONS (2)
  - DIABETES MELLITUS NON-INSULIN-DEPENDENT [None]
  - PHARMACEUTICAL PRODUCT COMPLAINT [None]
